FAERS Safety Report 6187716-4 (Version None)
Quarter: 2009Q2

REPORT INFORMATION
  Report Type: 
  Country: None (occurrence: None)
  Receive Date: 20090513
  Receipt Date: 20090507
  Transmission Date: 20091009
  Serious: No
  Sender: FDA-Public Use
  Company Number: CA-ASTRAZENECA-2009UW11875

PATIENT
  Sex: Male

DRUGS (1)
  1. IMDUR [Suspect]
     Route: 048
     Dates: start: 20090328, end: 20090416

REACTIONS (1)
  - ECZEMA [None]
